FAERS Safety Report 11794561 (Version 2)
Quarter: 2016Q3

REPORT INFORMATION
  Report Type: Spontaneous
  Country: US (occurrence: US)
  Receive Date: 20151202
  Receipt Date: 20160729
  Transmission Date: 20161109
  Serious: Yes (Other)
  Sender: FDA-Public Use
  Company Number: US-BRISTOL-MYERS SQUIBB COMPANY-BMS-2015-083799

PATIENT

DRUGS (3)
  1. INSULIN GLARGINE [Suspect]
     Active Substance: INSULIN GLARGINE
     Indication: TYPE 2 DIABETES MELLITUS
     Route: 065
  2. METFORMIN HYDROCHLORIDE. [Suspect]
     Active Substance: METFORMIN HYDROCHLORIDE
     Indication: TYPE 2 DIABETES MELLITUS
     Route: 048
  3. LIRAGLUTIDE [Suspect]
     Active Substance: LIRAGLUTIDE
     Indication: TYPE 2 DIABETES MELLITUS
     Route: 058

REACTIONS (35)
  - Thyroid cancer [Unknown]
  - Ischaemic stroke [Unknown]
  - Faecaloma [Unknown]
  - Pancreatitis acute [Unknown]
  - Cholecystitis [Unknown]
  - Cerebrovascular accident [Unknown]
  - Pyrexia [Unknown]
  - Urinary tract infection [Unknown]
  - Pneumonia [Unknown]
  - Pleurisy [Unknown]
  - Cellulitis [Unknown]
  - Blood glucose increased [Unknown]
  - Oliguria [Unknown]
  - Cardiac failure chronic [Unknown]
  - Vomiting [Unknown]
  - Prostate cancer [Unknown]
  - Headache [Unknown]
  - Presyncope [Unknown]
  - Atrioventricular block second degree [Unknown]
  - Rotator cuff syndrome [Unknown]
  - Suicidal behaviour [Unknown]
  - Chronic obstructive pulmonary disease [Unknown]
  - Cardiac arrest [Unknown]
  - Carpal tunnel syndrome [Unknown]
  - Cystitis [Unknown]
  - Osteomyelitis [Unknown]
  - Small intestinal obstruction [Unknown]
  - Chest pain [Unknown]
  - Intervertebral disc protrusion [Unknown]
  - Pancreatic carcinoma [Unknown]
  - Breast cancer [Unknown]
  - Diabetic gangrene [Unknown]
  - Dehydration [Unknown]
  - Non-Hodgkin^s lymphoma [Unknown]
  - Endocarditis bacterial [Unknown]
